FAERS Safety Report 7146474-7 (Version None)
Quarter: 2010Q4

REPORT INFORMATION
  Report Type: 
  Country: None (occurrence: None)
  Receive Date: 20101208
  Receipt Date: 20101207
  Transmission Date: 20110411
  Serious: Yes (Death)
  Sender: FDA-Public Use
  Company Number: US-CEPHALON-2010005958

PATIENT
  Sex: Male
  Weight: 115 kg

DRUGS (10)
  1. TREANDA [Suspect]
     Indication: MULTIPLE MYELOMA
     Route: 041
     Dates: start: 20100608, end: 20101029
  2. BORTEZOMIB [Suspect]
     Indication: MULTIPLE MYELOMA
     Route: 041
     Dates: start: 20100608, end: 20101105
  3. DEXAMETHASONE [Suspect]
     Indication: MULTIPLE MYELOMA
     Route: 048
     Dates: start: 20100608, end: 20101029
  4. ALLOPURINOL [Concomitant]
     Indication: PROPHYLAXIS
     Dates: start: 20100101
  5. COZAAR [Concomitant]
     Indication: HYPERTENSION
  6. CRESTOR [Concomitant]
     Indication: HYPERCHOLESTEROLAEMIA
  7. NEURONTIN [Concomitant]
     Indication: NEUROPATHY PERIPHERAL
     Dates: start: 20100827
  8. ZOMETA [Concomitant]
     Indication: OSTEOPOROSIS
     Dates: start: 20100928
  9. DILTIAZEM HCL [Concomitant]
     Indication: ATRIAL FIBRILLATION
     Dates: start: 20101103
  10. COUMADIN [Concomitant]
     Indication: ATRIAL FIBRILLATION
     Dates: start: 20101103

REACTIONS (1)
  - CARDIAC ARREST [None]
